FAERS Safety Report 11337303 (Version 1)
Quarter: 2015Q3

REPORT INFORMATION
  Report Type: Spontaneous
  Country: US (occurrence: US)
  Receive Date: 20150803
  Receipt Date: 20150803
  Transmission Date: 20151125
  Serious: Yes (Other)
  Sender: FDA-Public Use
  Company Number: US-ELI_LILLY_AND_COMPANY-US200903005260

PATIENT
  Sex: Female

DRUGS (2)
  1. ZYPREXA ZYDIS [Suspect]
     Active Substance: OLANZAPINE
     Indication: BIPOLAR DISORDER
     Dosage: 5 MG, AS NEEDED
     Dates: end: 2009
  2. ZYPREXA ZYDIS [Suspect]
     Active Substance: OLANZAPINE
     Dosage: 20 MG, EACH EVENING
     Dates: end: 2009

REACTIONS (8)
  - Fall [Unknown]
  - Seizure [Not Recovered/Not Resolved]
  - Road traffic accident [Recovered/Resolved]
  - Memory impairment [Unknown]
  - Tachycardia [Not Recovered/Not Resolved]
  - Prescribed overdose [Recovered/Resolved]
  - Abnormal behaviour [Unknown]
  - Muscle rigidity [Unknown]
